FAERS Safety Report 6490948-9 (Version None)
Quarter: 2009Q4

REPORT INFORMATION
  Report Type: 
  Country: None (occurrence: None)
  Receive Date: 20091211
  Receipt Date: 20090324
  Transmission Date: 20100525
  Serious: No
  Sender: FDA-Public Use
  Company Number: US-TYCO HEALTHCARE/MALLINCKRODT-T200900738

PATIENT
  Age: 52 Year
  Sex: Female
  Weight: 108.8 kg

DRUGS (6)
  1. METHYLIN [Suspect]
     Indication: FATIGUE
     Dosage: 10 MG, QID
     Route: 048
     Dates: start: 20090127, end: 20090321
  2. METHYLIN [Suspect]
     Indication: CRYING
  3. PROZAC                             /00724401/ [Concomitant]
     Dosage: 20 MG, PRN
     Route: 048
  4. LIPITOR [Concomitant]
     Dosage: UNK
     Route: 048
  5. PRILOSEC [Concomitant]
     Dosage: UNK
     Route: 048
  6. STEROIDS [Concomitant]
     Dosage: UNK
     Route: 048

REACTIONS (3)
  - ABASIA [None]
  - ASTHENIA [None]
  - DISORIENTATION [None]
